FAERS Safety Report 7672646-9 (Version None)
Quarter: 2011Q3

REPORT INFORMATION
  Report Type: 
  Country: None (occurrence: None)
  Receive Date: 20110809
  Receipt Date: 20110803
  Transmission Date: 20111222
  Serious: Yes (Other)
  Sender: FDA-Public Use
  Company Number: BR-PFIZER INC-2011154372

PATIENT
  Age: 44 Year
  Sex: Female
  Weight: 56 kg

DRUGS (6)
  1. ZOLPIDEM [Concomitant]
     Indication: INSOMNIA
     Dosage: 10 MG, 1X/DAY  (ONE TABLET AT NIGHT)
     Route: 048
     Dates: start: 20110505
  2. ZOLOFT [Suspect]
     Indication: ANXIETY
     Dosage: 50 MG, 1X/DAY (ONE TABLET AT NIGHT)
     Route: 048
     Dates: start: 20110505
  3. ZOLOFT [Suspect]
     Indication: DEPRESSION
     Dosage: 25 MG, UNK
     Route: 048
  4. ZOLOFT [Suspect]
     Dosage: 100 MG, UNK
     Route: 048
  5. ZOLOFT [Suspect]
     Dosage: 25 MG, UNK
     Route: 048
     Dates: start: 20110802, end: 20110803
  6. ZOLOFT [Suspect]
     Dosage: 50 MG, UNK
     Route: 048

REACTIONS (5)
  - CONSTIPATION [None]
  - FAECES HARD [None]
  - HAEMATOCHEZIA [None]
  - ABDOMINAL PAIN [None]
  - FREQUENT BOWEL MOVEMENTS [None]
